FAERS Safety Report 21966893 (Version 1)
Quarter: 2023Q1

REPORT INFORMATION
  Report Type: Spontaneous
  Country: DE (occurrence: DE)
  Receive Date: 20230208
  Receipt Date: 20230208
  Transmission Date: 20230418
  Serious: Yes (Death)
  Sender: FDA-Public Use
  Company Number: DE-INCEPTUA AB-DE-INC-23-000003

PATIENT
  Age: 67 Year
  Sex: Male

DRUGS (2)
  1. CARBOPLATIN [Suspect]
     Active Substance: CARBOPLATIN
     Indication: Oesophageal squamous cell carcinoma
     Dosage: 2 MG/ML
     Route: 042
  2. PACLITAXEL [Suspect]
     Active Substance: PACLITAXEL
     Indication: Oesophageal squamous cell carcinoma
     Dosage: 50 MILLIGRAM/SQ. METER(BODY-SURFACE AREA)
     Route: 042

REACTIONS (3)
  - Fistula [Fatal]
  - Off label use [Unknown]
  - Odynophagia [Unknown]
